FAERS Safety Report 12386758 (Version 2)
Quarter: 2016Q2

REPORT INFORMATION
  Report Type: Spontaneous
  Country: US (occurrence: US)
  Receive Date: 20160519
  Receipt Date: 20160617
  Transmission Date: 20160815
  Serious: Yes (Hospitalization)
  Sender: FDA-Public Use
  Company Number: US-ACTELION-A-NJ2016-136280

PATIENT
  Age: 57 Year
  Sex: Female
  Weight: 61.4 kg

DRUGS (3)
  1. REGLAN [Suspect]
     Active Substance: METOCLOPRAMIDE HYDROCHLORIDE
     Indication: PRODUCT USED FOR UNKNOWN INDICATION
     Dosage: 10 MG, UNK
     Route: 048
     Dates: end: 20160511
  2. VELETRI [Suspect]
     Active Substance: EPOPROSTENOL
     Indication: PULMONARY ARTERIAL HYPERTENSION
     Dosage: 28 NG/KG, PER MIN
     Route: 042
     Dates: start: 20131204
  3. SILDENAFIL. [Concomitant]
     Active Substance: SILDENAFIL

REACTIONS (8)
  - Weight decreased [Recovered/Resolved]
  - Overdose [Recovered/Resolved]
  - Chest discomfort [Recovered/Resolved]
  - Nausea [Recovered/Resolved]
  - Dizziness [Recovered/Resolved]
  - Nasopharyngitis [Unknown]
  - Malaise [Unknown]
  - Diarrhoea [Recovered/Resolved]
